FAERS Safety Report 4372982-8 (Version None)
Quarter: 2004Q2

REPORT INFORMATION
  Report Type: 
  Country: None (occurrence: None)
  Receive Date: 20040603
  Receipt Date: 20040513
  Transmission Date: 20050107
  Serious: Yes (Death)
  Sender: FDA-Public Use
  Company Number: USA040567537

PATIENT
  Sex: Female

DRUGS (2)
  1. PROZAC [Suspect]
     Indication: BULIMIA NERVOSA
     Dosage: 60 MG/1 DAY
     Dates: start: 20020101, end: 20021201
  2. AMITRIPTYLINE HCL [Concomitant]

REACTIONS (2)
  - CARDIAC ARREST [None]
  - DRUG TOXICITY [None]
